FAERS Safety Report 8174264-5 (Version None)
Quarter: 2012Q1

REPORT INFORMATION
  Report Type: 
  Country: None (occurrence: None)
  Receive Date: 20120229
  Receipt Date: 20120220
  Transmission Date: 20120608
  Serious: Yes (Hospitalization)
  Sender: FDA-Public Use
  Company Number: AU-JNJFOC-20120211871

PATIENT
  Sex: Male

DRUGS (1)
  1. INVEGA [Suspect]
     Indication: PRODUCT USED FOR UNKNOWN INDICATION
     Route: 048

REACTIONS (7)
  - VOMITING [None]
  - SWELLING FACE [None]
  - TREATMENT NONCOMPLIANCE [None]
  - BODY TEMPERATURE INCREASED [None]
  - HOSPITALISATION [None]
  - DEPRESSED MOOD [None]
  - POLYDIPSIA [None]
